FAERS Safety Report 9839430 (Version 2)
Quarter: 2014Q1

REPORT INFORMATION
  Report Type: Spontaneous
  Country: IT (occurrence: IT)
  Receive Date: 20140123
  Receipt Date: 20140226
  Transmission Date: 20141002
  Serious: Yes (Other)
  Sender: FDA-Public Use
  Company Number: IT-ROCHE-1334698

PATIENT
  Age: 49 Year
  Sex: Female

DRUGS (4)
  1. ZELBORAF [Suspect]
     Indication: MALIGNANT MELANOMA
     Route: 048
     Dates: start: 20131105
  2. MEPRAL [Concomitant]
     Route: 048
  3. CACIT (ITALY) [Concomitant]
     Route: 048
  4. CARDIOASPIRIN [Concomitant]
     Route: 048

REACTIONS (3)
  - Alopecia [Unknown]
  - Liver disorder [Unknown]
  - Skin exfoliation [Unknown]
